FAERS Safety Report 8418238-5 (Version None)
Quarter: 2012Q2

REPORT INFORMATION
  Report Type: 
  Country: None (occurrence: None)
  Receive Date: 20120607
  Receipt Date: 20120531
  Transmission Date: 20120825
  Serious: Yes (Hospitalization, Other)
  Sender: FDA-Public Use
  Company Number: IT-JNJFOC-20120301558

PATIENT
  Sex: Female

DRUGS (12)
  1. VITAMIN D [Concomitant]
     Indication: ILL-DEFINED DISORDER
     Route: 065
  2. RISPERDAL [Suspect]
     Route: 048
     Dates: start: 20120302, end: 20120302
  3. DIAZEPAM [Concomitant]
     Indication: ILL-DEFINED DISORDER
     Route: 048
  4. TRAZODONE HCL [Concomitant]
     Indication: ILL-DEFINED DISORDER
     Route: 065
  5. LEVOTHYROXINE SODIUM [Concomitant]
     Indication: ILL-DEFINED DISORDER
     Route: 065
  6. RISPERDAL [Suspect]
     Indication: BIPOLAR DISORDER
     Route: 048
  7. LORAZEPAM [Concomitant]
     Indication: ILL-DEFINED DISORDER
  8. VENLAFAXINE [Concomitant]
     Indication: ILL-DEFINED DISORDER
     Route: 065
  9. PREDNISONE TAB [Concomitant]
     Indication: ILL-DEFINED DISORDER
     Route: 065
  10. SODIUM HYPOCHLORITE [Suspect]
     Indication: SELF INJURIOUS BEHAVIOUR
     Route: 048
     Dates: start: 20120302, end: 20120302
  11. ESCITALOPRAM [Concomitant]
     Indication: ILL-DEFINED DISORDER
     Route: 065
  12. AZATIOPRINA [Concomitant]
     Indication: ILL-DEFINED DISORDER
     Route: 065

REACTIONS (3)
  - SELF INJURIOUS BEHAVIOUR [None]
  - INTENTIONAL OVERDOSE [None]
  - NAUSEA [None]
